FAERS Safety Report 25701186 (Version 1)
Quarter: 2025Q3

REPORT INFORMATION
  Report Type: Spontaneous
  Country: US (occurrence: None)
  Receive Date: 20250819
  Receipt Date: 20250819
  Transmission Date: 20251021
  Serious: Yes (Hospitalization)
  Sender: FDA-CTU
  Company Number: None

PATIENT
  Sex: Female

DRUGS (10)
  1. POMALYST [Suspect]
     Active Substance: POMALIDOMIDE
     Dosage: FREQUENCY : DAILY;?
     Route: 048
     Dates: start: 20241218
  2. ACYCLOVIR [Concomitant]
     Active Substance: ACYCLOVIR
  3. DEXAMETHASONE [Concomitant]
     Active Substance: DEXAMETHASONE
  4. ELIQUIS [Concomitant]
     Active Substance: APIXABAN
  5. GABAPENTIN [Concomitant]
     Active Substance: GABAPENTIN
  6. HYDROCHLOROTTAB25MG [Concomitant]
  7. KLOR-CON 10 TAB 10MEO ER [Concomitant]
  8. ROSUVASTATIN [Concomitant]
     Active Substance: ROSUVASTATIN
  9. SINGULAIR [Concomitant]
     Active Substance: MONTELUKAST SODIUM
  10. TRAZODONE [Concomitant]
     Active Substance: TRAZODONE HYDROCHLORIDE

REACTIONS (1)
  - Pneumonia [None]
